FAERS Safety Report 25802474 (Version 1)
Quarter: 2025Q3

REPORT INFORMATION
  Report Type: Spontaneous
  Country: US (occurrence: None)
  Receive Date: 20250913
  Receipt Date: 20250913
  Transmission Date: 20251020
  Serious: No
  Sender: FDA-CTU
  Company Number: None

PATIENT
  Age: 32 Year
  Sex: Male
  Weight: 67.5 kg

DRUGS (2)
  1. METRONIDAZOLE [Suspect]
     Active Substance: METRONIDAZOLE
     Indication: Tooth infection
     Dosage: OTHER QUANTITY : 15 TABLET(S);?FREQUENCY : 3 TIMES A DAY;?
     Route: 048
     Dates: start: 20250908, end: 20250913
  2. CLINDAMYCIN [Suspect]
     Active Substance: CLINDAMYCIN
     Indication: Tooth infection
     Dosage: OTHER QUANTITY : 30 CAPSULE(S);?FREQUENCY : 3 TIMES A DAY;?
     Route: 048
     Dates: start: 20250908, end: 20250913

REACTIONS (4)
  - Dyspepsia [None]
  - Chest pain [None]
  - Back pain [None]
  - Acne [None]

NARRATIVE: CASE EVENT DATE: 20250913
